FAERS Safety Report 15044892 (Version 2)
Quarter: 2018Q3

REPORT INFORMATION
  Report Type: Spontaneous
  Country: JP (occurrence: JP)
  Receive Date: 20180621
  Receipt Date: 20180720
  Transmission Date: 20181010
  Serious: Yes (Other)
  Sender: FDA-Public Use
  Company Number: JP-SA-2018SA151144

PATIENT
  Age: 75 Year
  Sex: Female

DRUGS (4)
  1. ACETYLSALICYLIC ACID [Concomitant]
     Active Substance: ASPIRIN
     Indication: ANTIPLATELET THERAPY
     Dosage: 100 MG, QD
     Route: 065
  2. PLAVIX [Suspect]
     Active Substance: CLOPIDOGREL BISULFATE
     Dosage: 75 MG, QD
     Route: 048
  3. PLAVIX [Suspect]
     Active Substance: CLOPIDOGREL BISULFATE
     Indication: ANTIPLATELET THERAPY
     Dosage: 75 MG, QD
     Route: 048
  4. ACETYLSALICYLIC ACID [Concomitant]
     Active Substance: ASPIRIN
     Dosage: 100 MG, QD
     Route: 065

REACTIONS (8)
  - Oesophageal mucosal dissection [Recovering/Resolving]
  - Hyperactive pharyngeal reflex [Recovering/Resolving]
  - Oesophageal intramural haematoma [Recovering/Resolving]
  - Oesophageal stenosis [Recovering/Resolving]
  - Back pain [Recovering/Resolving]
  - Haematoma [Recovering/Resolving]
  - Gastrointestinal wall thickening [Recovering/Resolving]
  - Haematemesis [Recovering/Resolving]
